FAERS Safety Report 9881566 (Version 7)
Quarter: 2015Q2

REPORT INFORMATION
  Report Type: Spontaneous
  Country: US (occurrence: US)
  Receive Date: 20140207
  Receipt Date: 20150526
  Transmission Date: 20150821
  Serious: Yes (Other)
  Sender: FDA-Public Use
  Company Number: US-JNJFOC-20140119492

PATIENT
  Sex: Male

DRUGS (6)
  1. RISPERDAL [Suspect]
     Active Substance: RISPERIDONE
     Indication: SCHIZOPHRENIA
     Route: 048
     Dates: start: 2001, end: 200710
  2. OLANZAPINE. [Suspect]
     Active Substance: OLANZAPINE
     Indication: PSYCHOTIC DISORDER
     Route: 048
  3. RISPERDAL [Suspect]
     Active Substance: RISPERIDONE
     Indication: PSYCHOTIC DISORDER
     Route: 048
     Dates: start: 2001, end: 200710
  4. HALOPERIDOL DECANOATE. [Suspect]
     Active Substance: HALOPERIDOL DECANOATE
     Indication: PSYCHOTIC DISORDER
     Route: 030
  5. HALDOL [Suspect]
     Active Substance: HALOPERIDOL
     Indication: SCHIZOPHRENIA
     Route: 030
  6. ZIPRASIDONE [Suspect]
     Active Substance: ZIPRASIDONE
     Indication: PSYCHOTIC DISORDER
     Route: 065

REACTIONS (11)
  - Overdose [Unknown]
  - Blood prolactin increased [Unknown]
  - Tardive dyskinesia [Unknown]
  - Sexual dysfunction [Unknown]
  - Affective disorder [Unknown]
  - Obesity [Unknown]
  - Gynaecomastia [Unknown]
  - Glucose tolerance impaired [Unknown]
  - Erectile dysfunction [Not Recovered/Not Resolved]
  - Emotional distress [Unknown]
  - Headache [Unknown]

NARRATIVE: CASE EVENT DATE: 2005
